FAERS Safety Report 18321926 (Version 1)
Quarter: 2020Q3

REPORT INFORMATION
  Report Type: Report from Study
  Country: None (occurrence: US)
  Receive Date: 20200929
  Receipt Date: 20200929
  Transmission Date: 20201103
  Serious: Yes (Hospitalization, Other)
  Sender: FDA-Public Use
  Company Number: US-ABBVIE-20K-163-3379983-00

PATIENT
  Age: 83 Year
  Sex: Female
  Weight: 64.92 kg

DRUGS (9)
  1. METHOTREXATE. [Concomitant]
     Active Substance: METHOTREXATE
     Indication: RHEUMATOID ARTHRITIS
  2. HUMIRA [Suspect]
     Active Substance: ADALIMUMAB
     Indication: RHEUMATOID ARTHRITIS
     Route: 058
     Dates: start: 2018
  3. SYNTHROID [Concomitant]
     Active Substance: LEVOTHYROXINE SODIUM
     Indication: THYROID HORMONE REPLACEMENT THERAPY
  4. BABY ASPIRIN [Concomitant]
     Active Substance: ASPIRIN
     Indication: PRODUCT USED FOR UNKNOWN INDICATION
  5. CRANBERRY [VACCINIUM SPP.] [Concomitant]
     Indication: PRODUCT USED FOR UNKNOWN INDICATION
  6. CALCIUM [Concomitant]
     Active Substance: CALCIUM
     Indication: SUPPLEMENTATION THERAPY
  7. TRAZODONE [Concomitant]
     Active Substance: TRAZODONE HYDROCHLORIDE
     Indication: SLEEP DISORDER
  8. IRON [Concomitant]
     Active Substance: IRON
     Indication: ANAEMIA
  9. HUMIRA [Suspect]
     Active Substance: ADALIMUMAB
     Route: 058

REACTIONS (18)
  - Abdominal pain lower [Recovered/Resolved]
  - Mobility decreased [Recovering/Resolving]
  - Depression [Unknown]
  - Abdominal pain upper [Unknown]
  - Gastrooesophageal reflux disease [Unknown]
  - Arthralgia [Recovering/Resolving]
  - Fall [Recovered/Resolved]
  - Blood electrolytes decreased [Not Recovered/Not Resolved]
  - Rheumatoid arthritis [Recovering/Resolving]
  - Hypokalaemia [Recovered/Resolved]
  - Pain [Recovered/Resolved]
  - Blood potassium decreased [Not Recovered/Not Resolved]
  - Asthma [Unknown]
  - Precancerous cells present [Recovered/Resolved]
  - Gastrointestinal scarring [Recovered/Resolved]
  - Spinal fracture [Recovered/Resolved]
  - Pain in extremity [Recovering/Resolving]
  - Hypertension [Unknown]

NARRATIVE: CASE EVENT DATE: 2019
